FAERS Safety Report 17002532 (Version 2)
Quarter: 2019Q4

REPORT INFORMATION
  Report Type: Spontaneous
  Country: US (occurrence: US)
  Receive Date: 20191107
  Receipt Date: 20191120
  Transmission Date: 20200122
  Serious: Yes (Death, Hospitalization, Congenital Anomaly, Other)
  Sender: FDA-Public Use
  Company Number: US-ADVANZ PHARMA-201910001435

PATIENT

DRUGS (3)
  1. HYDROXYCHLOROQUINE [Suspect]
     Active Substance: HYDROXYCHLOROQUINE
     Indication: CONNECTIVE TISSUE DISORDER
     Dosage: UNK
     Route: 065
  2. PREDNISONE. [Suspect]
     Active Substance: PREDNISONE
     Indication: CONNECTIVE TISSUE DISORDER
     Dosage: UNK
     Route: 065
  3. RITUXIMAB. [Suspect]
     Active Substance: RITUXIMAB
     Indication: CONNECTIVE TISSUE DISORDER
     Dosage: UNK
     Route: 065

REACTIONS (17)
  - Haemophagocytic lymphohistiocytosis [Fatal]
  - Liver injury [Fatal]
  - Splenomegaly [Fatal]
  - Off label use [Unknown]
  - Pyrexia [Fatal]
  - Pancytopenia [Fatal]
  - Myositis [Fatal]
  - Hypoxia [Fatal]
  - Respiratory tract infection fungal [Unknown]
  - Multiple organ dysfunction syndrome [Fatal]
  - Mental status changes [Fatal]
  - Haematochezia [Fatal]
  - Acute kidney injury [Fatal]
  - Escherichia infection [Unknown]
  - Ulcer [Fatal]
  - Hypotension [Fatal]
  - Fungal skin infection [Unknown]
